FAERS Safety Report 4672464-X (Version None)
Quarter: 2005Q2

REPORT INFORMATION
  Report Type: 
  Country: None (occurrence: None)
  Receive Date: 20050523
  Receipt Date: 20050505
  Transmission Date: 20051028
  Serious: Yes (Life-Threatening)
  Sender: FDA-Public Use
  Company Number: DSA_26424_2005

PATIENT
  Age: 77 Year
  Sex: Male

DRUGS (4)
  1. NIFEDIPINE [Suspect]
     Indication: HYPERTENSION
     Dosage: DF
  2. CLARITHROMYCIN [Suspect]
     Indication: HYPERTENSION
  3. CAPTOPRIL [Concomitant]
  4. DOXAZOSIN [Concomitant]

REACTIONS (5)
  - ATRIOVENTRICULAR BLOCK [None]
  - DRUG INTERACTION [None]
  - MULTI-ORGAN FAILURE [None]
  - SHOCK [None]
  - VASCULAR RESISTANCE SYSTEMIC DECREASED [None]
